FAERS Safety Report 9323680 (Version 1)
Quarter: 2013Q2

REPORT INFORMATION
  Report Type: Report from Study
  Country: US (occurrence: US)
  Receive Date: 20130603
  Receipt Date: 20130603
  Transmission Date: 20140414
  Serious: Yes (Death, Other)
  Sender: FDA-Public Use
  Company Number: PHEH2013US007981

PATIENT
  Age: 30 Year
  Sex: Female

DRUGS (6)
  1. AFINITOR [Suspect]
     Indication: RENAL CANCER
     Dosage: 5 MG, DAILY
     Route: 048
     Dates: start: 20130304
  2. DEPAKOTE [Concomitant]
     Dosage: 125 MG, TID
  3. DILANTIN                                /AUS/ [Concomitant]
     Dosage: 75 MG, BID
  4. MULTIVITAMINS [Concomitant]
  5. MIRCETTE [Concomitant]
  6. MIRALAX [Concomitant]

REACTIONS (2)
  - Drowning [Fatal]
  - Convulsion [Not Recovered/Not Resolved]
